FAERS Safety Report 18068090 (Version 1)
Quarter: 2020Q3

REPORT INFORMATION
  Report Type: Report from Study
  Country: CA (occurrence: CA)
  Receive Date: 20200724
  Receipt Date: 20200724
  Transmission Date: 20201103
  Serious: Yes (Death)
  Sender: FDA-Public Use
  Company Number: CA-ACTELION-A-NJ2018-174293

PATIENT
  Age: 67 Year
  Sex: Female
  Weight: 65.76 kg

DRUGS (7)
  1. CIALIS [Concomitant]
     Active Substance: TADALAFIL
     Dosage: 20 MG, QD
  2. POLYSACCHARIDE?IRON COMPLEX [Concomitant]
     Active Substance: FERRIC POLYSACCHARIDE COMPLEX
     Route: 048
  3. SPIRONOLACTONE. [Concomitant]
     Active Substance: SPIRONOLACTONE
  4. CLOPIDOGREL [Concomitant]
     Active Substance: CLOPIDOGREL BISULFATE
  5. FUROSEMIDE. [Concomitant]
     Active Substance: FUROSEMIDE
  6. OPSUMIT [Suspect]
     Active Substance: MACITENTAN
     Indication: PULMONARY HYPERTENSION
     Dosage: 10 MG, QD
     Route: 048
     Dates: start: 20180524
  7. ROSUVASTATIN. [Concomitant]
     Active Substance: ROSUVASTATIN

REACTIONS (5)
  - Death [Fatal]
  - Hypotension [Recovered/Resolved]
  - Anaemia [Not Recovered/Not Resolved]
  - Hot flush [Recovered/Resolved]
  - Pain in extremity [Not Recovered/Not Resolved]

NARRATIVE: CASE EVENT DATE: 20180529
